FAERS Safety Report 13876104 (Version 2)
Quarter: 2017Q3

REPORT INFORMATION
  Report Type: Spontaneous
  Country: US (occurrence: US)
  Receive Date: 20170817
  Receipt Date: 20170926
  Transmission Date: 20171127
  Serious: No
  Sender: FDA-Public Use
  Company Number: US-PFIZER INC-2017353573

PATIENT
  Age: 14 Year
  Sex: Female
  Weight: 43.99 kg

DRUGS (1)
  1. GENOTROPIN MQ [Suspect]
     Active Substance: SOMATROPIN
     Indication: BODY HEIGHT BELOW NORMAL
     Dosage: 2.2 MG, SIX DAYS PER WEEK
     Route: 058
     Dates: start: 20160706

REACTIONS (1)
  - Tinea infection [Unknown]
